FAERS Safety Report 8586055-1 (Version None)
Quarter: 2012Q3

REPORT INFORMATION
  Report Type: 
  Country: None (occurrence: None)
  Receive Date: 20120810
  Receipt Date: 20120802
  Transmission Date: 20120928
  Serious: Yes (Hospitalization)
  Sender: FDA-Public Use
  Company Number: US-ROCHE-1065877

PATIENT
  Sex: Male

DRUGS (1)
  1. INVIRASE [Suspect]
     Indication: PRODUCT USED FOR UNKNOWN INDICATION

REACTIONS (6)
  - RENAL FAILURE [None]
  - PENILE INFECTION [None]
  - NEOPLASM MALIGNANT [None]
  - INFECTION [None]
  - ESCHERICHIA INFECTION [None]
  - PENIS CARCINOMA [None]
